FAERS Safety Report 18785056 (Version 2)
Quarter: 2021Q1

REPORT INFORMATION
  Report Type: Spontaneous
  Country: US (occurrence: US)
  Receive Date: 20210125
  Receipt Date: 20210209
  Transmission Date: 20210419
  Serious: Yes (Other)
  Sender: FDA-Public Use
  Company Number: US-ALLERGAN-2101963US

PATIENT
  Sex: Female

DRUGS (1)
  1. INFED [Suspect]
     Active Substance: IRON DEXTRAN
     Indication: IRON DEFICIENCY
     Dosage: 25 MG, TEST DOSE
     Route: 042
     Dates: start: 20200721, end: 20200721

REACTIONS (10)
  - Mental status changes [Recovering/Resolving]
  - Oxygen saturation decreased [Recovering/Resolving]
  - Rash macular [Unknown]
  - Pallor [Unknown]
  - Fall [Recovered/Resolved]
  - Dyspnoea [Recovering/Resolving]
  - Hypersensitivity [Unknown]
  - Flushing [Unknown]
  - Nausea [Unknown]
  - Abdominal pain [Unknown]

NARRATIVE: CASE EVENT DATE: 20200721
